FAERS Safety Report 4595121-7 (Version None)
Quarter: 2005Q1

REPORT INFORMATION
  Report Type: 
  Country: None (occurrence: None)
  Receive Date: 20050224
  Receipt Date: 20031201
  Transmission Date: 20050727
  Serious: Yes (Other)
  Sender: FDA-Public Use
  Company Number: GXKR2003US00620

PATIENT
  Age: 23 Year
  Sex: Female

DRUGS (7)
  1. CIPROFLOXACIN [Suspect]
     Indication: MYCOBACTERIUM AVIUM COMPLEX INFECTION
     Dosage: 750 MG, BID, UNKNOWN
  2. RIFABUTIN [Suspect]
     Indication: MYCOBACTERIUM AVIUM COMPLEX INFECTION
     Dosage: 150 MG, BID, UNKNOWN
  3. ETHAMBUTOL HCL [Suspect]
     Indication: MYCOBACTERIUM AVIUM COMPLEX INFECTION
     Dosage: 250 MG, TID
  4. THEOPHYLLINE [Concomitant]
  5. NORTRIPTYLINE HCL [Concomitant]
  6. VITAMINS (NO INGREDIENTS/SUBSTANCES) [Concomitant]
  7. ALBUTEROL [Concomitant]

REACTIONS (5)
  - RED BLOOD CELLS URINE [None]
  - RENAL FAILURE ACUTE [None]
  - VOMITING [None]
  - WEIGHT DECREASED [None]
  - WHITE BLOOD CELLS URINE [None]
